FAERS Safety Report 23999912 (Version 1)
Quarter: 2024Q2

REPORT INFORMATION
  Report Type: Spontaneous
  Country: US (occurrence: None)
  Receive Date: 20240620
  Receipt Date: 20240620
  Transmission Date: 20240715
  Serious: Yes (Hospitalization, Disabling)
  Sender: FDA-Public Use
  Company Number: None

PATIENT
  Age: 64 Year
  Sex: Male
  Weight: 140.8 kg

DRUGS (4)
  1. VANCOMYCIN [Suspect]
     Active Substance: VANCOMYCIN
     Indication: Localised infection
     Dosage: FREQUENCY : TWICE A DAY;?
     Route: 042
     Dates: start: 20240518, end: 20240523
  2. TORSEMIDE [Concomitant]
     Active Substance: TORSEMIDE
  3. AMLODIPINE [Concomitant]
     Active Substance: AMLODIPINE BESYLATE
  4. APIXABAN [Concomitant]
     Active Substance: APIXABAN

REACTIONS (2)
  - Acute kidney injury [None]
  - Haemodialysis [None]

NARRATIVE: CASE EVENT DATE: 20240523
